FAERS Safety Report 21741660 (Version 1)
Quarter: 2022Q4

REPORT INFORMATION
  Report Type: Report from Study
  Country: IN (occurrence: IN)
  Receive Date: 20221216
  Receipt Date: 20221216
  Transmission Date: 20230112
  Serious: Yes (Death, Other)
  Sender: FDA-Public Use
  Company Number: IN-PFIZER INC-PV202200123857

PATIENT
  Sex: Female

DRUGS (1)
  1. TALIGLUCERASE ALFA [Suspect]
     Active Substance: TALIGLUCERASE ALFA
     Dosage: UNK

REACTIONS (6)
  - Death [Fatal]
  - Meningitis [Unknown]
  - Dengue fever [Unknown]
  - Pyrexia [Unknown]
  - Injection site abscess [Unknown]
  - Headache [Unknown]
